FAERS Safety Report 10511080 (Version 1)
Quarter: 2014Q4

REPORT INFORMATION
  Report Type: Spontaneous
  Country: US (occurrence: US)
  Receive Date: 20141010
  Receipt Date: 20141010
  Transmission Date: 20150528
  Serious: No
  Sender: FDA-Public Use
  Company Number: US-009507513-1409USA013388

PATIENT
  Age: 16 Year
  Sex: Female
  Weight: 63.49 kg

DRUGS (1)
  1. NEXPLANON [Suspect]
     Active Substance: ETONOGESTREL
     Indication: CONTRACEPTION
     Dosage: 1 ROD/ 3 YEARS
     Route: 059
     Dates: start: 20140403

REACTIONS (4)
  - Menstruation irregular [Unknown]
  - Weight increased [Unknown]
  - Metrorrhagia [Unknown]
  - Skin mass [Unknown]

NARRATIVE: CASE EVENT DATE: 201405
